FAERS Safety Report 7885290-5 (Version None)
Quarter: 2011Q4

REPORT INFORMATION
  Report Type: 
  Country: None (occurrence: None)
  Receive Date: 20111102
  Receipt Date: 20111025
  Transmission Date: 20120403
  Serious: Yes (Hospitalization)
  Sender: FDA-Public Use
  Company Number: JP-B.I. PHARMACEUTICALS,INC./RIDGEFIELD-2011-BP-25000NB

PATIENT
  Age: 71 Year
  Sex: Male

DRUGS (5)
  1. OLMESARTAN MEDOXOMIL [Concomitant]
  2. LIPITOR [Concomitant]
  3. GLYBURIDE [Concomitant]
  4. SPIRIVA [Suspect]
     Dosage: 18 MCG
     Route: 055
     Dates: start: 20110920
  5. SITAGLIPTIN PHOSPHATE [Suspect]
     Dosage: NR
     Route: 065

REACTIONS (1)
  - CEREBRAL HAEMORRHAGE [None]
